FAERS Safety Report 15129081 (Version 2)
Quarter: 2018Q3

REPORT INFORMATION
  Report Type: Report from Study
  Country: US (occurrence: US)
  Receive Date: 20180711
  Receipt Date: 20180810
  Transmission Date: 20181010
  Serious: No
  Sender: FDA-Public Use
  Company Number: US-THERATECHNOLOGIES, INC.-TH-2018-00307

PATIENT

DRUGS (7)
  1. EGRIFTA [Suspect]
     Active Substance: TESAMORELIN
     Dosage: UNK, DAILY DOSE
     Route: 058
     Dates: start: 201801
  2. ISENTRESS [Concomitant]
     Active Substance: RALTEGRAVIR POTASSIUM
     Dosage: UNK
  3. GABAPENTIN. [Concomitant]
     Active Substance: GABAPENTIN
     Dosage: UNK
  4. EGRIFTA [Suspect]
     Active Substance: TESAMORELIN
     Dosage: UNK, DAILY DOSE
     Route: 058
     Dates: start: 201803
  5. REYATAZ [Concomitant]
     Active Substance: ATAZANAVIR SULFATE
     Dosage: UNK
  6. EPIVIR [Concomitant]
     Active Substance: LAMIVUDINE
     Dosage: UNK
  7. WELLBUTRIN [Concomitant]
     Active Substance: BUPROPION HYDROCHLORIDE
     Dosage: UNK

REACTIONS (5)
  - Hypoaesthesia [Unknown]
  - Pain in extremity [Unknown]
  - Pain [Recovering/Resolving]
  - Bone pain [Recovered/Resolved]
  - Bone pain [Recovering/Resolving]

NARRATIVE: CASE EVENT DATE: 2018
